FAERS Safety Report 16831257 (Version 1)
Quarter: 2019Q3

REPORT INFORMATION
  Report Type: Report from Study
  Country: DE (occurrence: DE)
  Receive Date: 20190920
  Receipt Date: 20190920
  Transmission Date: 20191005
  Serious: Yes (Other)
  Sender: FDA-Public Use
  Company Number: DE-EMD SERONO-9116636

PATIENT
  Age: 40 Year
  Sex: Female

DRUGS (2)
  1. REBIF [Suspect]
     Active Substance: INTERFERON BETA-1A
     Indication: NEUROMYELITIS OPTICA SPECTRUM DISORDER
     Route: 058
  2. REBIF [Suspect]
     Active Substance: INTERFERON BETA-1A
     Dosage: DOSE REDUCTION
     Route: 058

REACTIONS (4)
  - Urticaria [Unknown]
  - Fall [Unknown]
  - Off label use [Unknown]
  - Uterine prolapse [Recovered/Resolved]

NARRATIVE: CASE EVENT DATE: 201907
